FAERS Safety Report 8477039-2 (Version None)
Quarter: 2012Q2

REPORT INFORMATION
  Report Type: 
  Country: None (occurrence: None)
  Receive Date: 20120629
  Receipt Date: 20120605
  Transmission Date: 20120825
  Serious: Yes (Other)
  Sender: FDA-Public Use
  Company Number: DE-BAYER-2012-057185

PATIENT
  Age: 66 Year
  Sex: Female
  Weight: 52.971 kg

DRUGS (6)
  1. HYDROXYCARBAMID [Concomitant]
  2. ANAGRELIDE HYDROCHLORIDE [Suspect]
     Indication: MYELOPROLIFERATIVE DISORDER
     Dosage: UNK
     Route: 048
     Dates: start: 20060508, end: 20060622
  3. ANAGRELIDE HYDROCHLORIDE [Suspect]
     Dosage: UNK
     Route: 048
     Dates: start: 20060704, end: 20060711
  4. FLUOXETINE [Concomitant]
  5. ASPIRIN [Suspect]
     Dosage: 100 MG, UNK
     Dates: start: 20060301, end: 20060622
  6. ANAGRELIDE HYDROCHLORIDE [Suspect]
     Dosage: UNK
     Route: 048
     Dates: start: 20060626, end: 20060704

REACTIONS (1)
  - MALLORY-WEISS SYNDROME [None]
